FAERS Safety Report 18856729 (Version 7)
Quarter: 2025Q2

REPORT INFORMATION
  Report Type: Report from Study
  Country: US (occurrence: US)
  Receive Date: 20210207
  Receipt Date: 20250520
  Transmission Date: 20250716
  Serious: No
  Sender: TAKEDA
  Company Number: US-TAKEDA-2021TUS006173

PATIENT
  Sex: Female
  Weight: 68 kg

DRUGS (18)
  1. HUMAN IMMUNOGLOBULIN G\HYALURONIDASE RECOMBINANT HUMAN [Suspect]
     Active Substance: HUMAN IMMUNOGLOBULIN G\HYALURONIDASE (HUMAN RECOMBINANT)
     Indication: Immunodeficiency common variable
     Dosage: 30 GRAM, Q4WEEKS
     Dates: start: 20170224
  2. RECLAST [Suspect]
     Active Substance: ZOLEDRONIC ACID
     Indication: Product used for unknown indication
  3. SODIUM CHLORIDE [Concomitant]
     Active Substance: SODIUM CHLORIDE
  4. ACETAMINOPHEN [Concomitant]
     Active Substance: ACETAMINOPHEN
  5. TYLENOL [Concomitant]
     Active Substance: ACETAMINOPHEN
  6. ROSUVASTATIN CALCIUM [Concomitant]
     Active Substance: ROSUVASTATIN CALCIUM
  7. IBUPROFEN [Concomitant]
     Active Substance: IBUPROFEN
  8. DIPHENHYDRAMINE [Concomitant]
     Active Substance: DIPHENHYDRAMINE
  9. PAIN RELIEVER PM [Concomitant]
  10. COZAAR [Concomitant]
     Active Substance: LOSARTAN POTASSIUM
  11. ADVIL [Concomitant]
     Active Substance: IBUPROFEN
  12. EPINEPHRINE [Concomitant]
     Active Substance: EPINEPHRINE
  13. LISINOPRIL [Concomitant]
     Active Substance: LISINOPRIL
  14. SIMVASTATIN [Concomitant]
     Active Substance: SIMVASTATIN
  15. MODERNA COVID-19 VACCINE [Concomitant]
     Active Substance: ELASOMERAN
  16. BENEFIBER [Concomitant]
     Active Substance: STARCH, WHEAT
  17. BUSPIRONE [Concomitant]
     Active Substance: BUSPIRONE HYDROCHLORIDE
  18. DIPHENHYDRAMINE HYDROCHLORIDE [Concomitant]
     Active Substance: DIPHENHYDRAMINE HYDROCHLORIDE

REACTIONS (13)
  - Meniscus injury [Unknown]
  - Influenza [Unknown]
  - Feeling abnormal [Unknown]
  - Infusion site discharge [Not Recovered/Not Resolved]
  - Product use issue [Unknown]
  - Inappropriate schedule of product administration [Unknown]
  - Insurance issue [Unknown]
  - Blood pressure abnormal [Unknown]
  - Swelling face [Unknown]
  - Rash erythematous [Unknown]
  - Chills [Unknown]
  - Headache [Unknown]
  - Infusion site pain [Unknown]
